FAERS Safety Report 4940613-1 (Version None)
Quarter: 2006Q1

REPORT INFORMATION
  Report Type: 
  Country: None (occurrence: None)
  Receive Date: 20060127
  Receipt Date: 20050311
  Transmission Date: 20060701
  Serious: Yes (Hospitalization)
  Sender: FDA-Public Use
  Company Number: 2005RL000029

PATIENT
  Age: 82 Year
  Sex: Female

DRUGS (1)
  1. PROPAFENONE HCL [Suspect]
     Indication: ATRIAL FIBRILLATION
     Dosage: 300 MG;QD;PO
     Route: 048
     Dates: end: 20050113

REACTIONS (1)
  - HEPATIC ENZYME INCREASED [None]
